FAERS Safety Report 14758378 (Version 2)
Quarter: 2018Q2

REPORT INFORMATION
  Report Type: Spontaneous
  Country: TW (occurrence: TW)
  Receive Date: 20180413
  Receipt Date: 20180521
  Transmission Date: 20180711
  Serious: Yes (Death, Hospitalization)
  Sender: FDA-Public Use
  Company Number: TW-CELGENEUS-TWN-20180400038

PATIENT
  Age: 52 Year
  Sex: Male
  Weight: 63 kg

DRUGS (9)
  1. REVLIMID [Suspect]
     Active Substance: LENALIDOMIDE
     Indication: PLASMA CELL MYELOMA
     Dosage: 25 MILLIGRAM
     Route: 048
     Dates: start: 20160805, end: 20180208
  2. LOPERAMIDE [Concomitant]
     Active Substance: LOPERAMIDE
     Indication: DIARRHOEA
     Route: 065
     Dates: start: 20180301, end: 20180312
  3. DEXAMETHASONE. [Concomitant]
     Active Substance: DEXAMETHASONE
     Route: 065
     Dates: start: 20160805, end: 20180221
  4. CORTRIMOXAZOLE [Concomitant]
     Indication: PROPHYLAXIS
     Dosage: 1 DOSAGE FORMS
     Route: 065
     Dates: start: 20180308, end: 20180312
  5. LORAZEPAM. [Concomitant]
     Active Substance: LORAZEPAM
     Indication: DIARRHOEA
     Route: 065
     Dates: start: 20130319, end: 20180312
  6. ZOLPIDEM [Concomitant]
     Active Substance: ZOLPIDEM\ZOLPIDEM TARTRATE
     Indication: INSOMNIA
     Route: 065
     Dates: start: 20161116, end: 20180312
  7. DEXAMETHASONE. [Concomitant]
     Active Substance: DEXAMETHASONE
     Indication: PLASMA CELL MYELOMA
     Dosage: 1.4286 MILLIGRAM
     Route: 065
     Dates: start: 20180308, end: 20180312
  8. ULTRACET [Concomitant]
     Active Substance: ACETAMINOPHEN\TRAMADOL HYDROCHLORIDE
     Indication: BACK PAIN
     Dosage: .1429 DOSAGE FORMS
     Route: 065
     Dates: start: 20180312, end: 20180312
  9. CYCLOPHOSPHAMIDE. [Concomitant]
     Active Substance: CYCLOPHOSPHAMIDE
     Indication: PLASMA CELL MYELOMA
     Route: 065
     Dates: start: 20160805, end: 20180221

REACTIONS (1)
  - Plasma cell leukaemia [Fatal]

NARRATIVE: CASE EVENT DATE: 20180222
